FAERS Safety Report 20382429 (Version 1)
Quarter: 2022Q1

REPORT INFORMATION
  Report Type: Spontaneous
  Country: US (occurrence: None)
  Receive Date: 20220127
  Receipt Date: 20220127
  Transmission Date: 20220423
  Serious: Yes (Hospitalization)
  Sender: FDA-Public Use
  Company Number: None

PATIENT
  Age: 73 Year
  Sex: Male
  Weight: 53.52 kg

DRUGS (1)
  1. CYCLOBENZAPRINE HYDROCHLORIDE [Suspect]
     Active Substance: CYCLOBENZAPRINE HYDROCHLORIDE
     Indication: Pain
     Dosage: FREQUENCY : DAILY;?
     Route: 048
     Dates: start: 20211209, end: 20211218

REACTIONS (8)
  - Urticaria [None]
  - Rash pruritic [None]
  - Throat tightness [None]
  - Dizziness [None]
  - Chills [None]
  - Hyperhidrosis [None]
  - Skin weeping [None]
  - Skin exfoliation [None]

NARRATIVE: CASE EVENT DATE: 20211217
